FAERS Safety Report 13237305 (Version 1)
Quarter: 2017Q1

REPORT INFORMATION
  Report Type: Spontaneous
  Country: US (occurrence: US)
  Receive Date: 20170215
  Receipt Date: 20170215
  Transmission Date: 20170428
  Serious: Yes (Hospitalization, Other)
  Sender: FDA-Public Use
  Company Number: US-ALLERGAN-1705095US

PATIENT
  Age: 73 Year
  Sex: Male

DRUGS (2)
  1. MESALAMINE. [Suspect]
     Active Substance: MESALAMINE
     Indication: COLITIS ULCERATIVE
     Dosage: 4.8 MG, QD
     Route: 048
  2. MESALAZINE - BP [Suspect]
     Active Substance: MESALAMINE
     Indication: COLITIS ULCERATIVE
     Dosage: 4 G, UNK
     Route: 054

REACTIONS (4)
  - Renal failure [Recovered/Resolved]
  - Neutrophilia [Recovered/Resolved]
  - Liver function test increased [Recovered/Resolved]
  - Acute generalised exanthematous pustulosis [Recovered/Resolved]
